FAERS Safety Report 8978500 (Version 2)
Quarter: 2013Q1

REPORT INFORMATION
  Report Type: Spontaneous
  Country: CA (occurrence: CA)
  Receive Date: 20121221
  Receipt Date: 20130128
  Transmission Date: 20140127
  Serious: Yes (Death)
  Sender: FDA-Public Use
  Company Number: CA-JNJFOC-20121208536

PATIENT
  Age: 70 Year
  Sex: Male
  Weight: 93.8 kg

DRUGS (18)
  1. XARELTO [Suspect]
     Indication: KNEE ARTHROPLASTY
     Route: 048
     Dates: start: 2011
  2. XARELTO [Suspect]
     Indication: THROMBOSIS PROPHYLAXIS
     Route: 048
     Dates: start: 2011
  3. ACETAMINOPHEN [Concomitant]
     Route: 065
  4. SODIUM CHLORIDE [Concomitant]
     Dosage: 2 DAYS
     Route: 048
     Dates: start: 2011
  5. CEFTRIAXONE [Concomitant]
     Dosage: 7 DAYS
     Route: 042
     Dates: start: 2011
  6. CEPHALEXIN [Concomitant]
     Dosage: PO *48 HOURS
     Route: 048
     Dates: start: 2011
  7. FLUOXETINE [Concomitant]
     Route: 065
  8. HYDROMORPHONE [Concomitant]
     Route: 065
  9. LASIX [Concomitant]
     Dosage: 1 DOSE
     Route: 042
  10. OXYCODONE [Concomitant]
     Route: 065
  11. OXYCONTIN [Concomitant]
     Route: 065
  12. PHOSPHATES [Concomitant]
     Dosage: 1 DOSE
     Route: 048
     Dates: start: 2011
  13. ROPIVACAINE HYDROCHLORIDE [Concomitant]
     Route: 065
  14. SENNOSIDE [Concomitant]
     Route: 065
  15. CEFAZOLIN [Concomitant]
     Route: 030
  16. ATORVASTATIN CALCIUM [Concomitant]
     Route: 065
  17. AMITRIPTYLINE [Concomitant]
     Route: 065
  18. GABAPENTIN [Concomitant]
     Route: 065

REACTIONS (4)
  - Cardiac arrest [Fatal]
  - Muscle haemorrhage [Unknown]
  - Post procedural haemorrhage [Unknown]
  - Haemorrhage subcutaneous [Unknown]
